FAERS Safety Report 7653159 (Version 7)
Quarter: 2013Q1

REPORT INFORMATION
  Report Type: Spontaneous
  Country: GB (occurrence: GB)
  Receive Date: 20101102
  Receipt Date: 20130102
  Transmission Date: 20140127
  Serious: Yes (Other)
  Sender: FDA-Public Use
  Company Number: PHFR2010GB01428

PATIENT
  Age: 45 Year
  Sex: Male

DRUGS (7)
  1. CLOZARIL [Suspect]
     Indication: SCHIZOPHRENIA
     Dosage: 350 MG
     Route: 048
     Dates: start: 20091014
  2. PREGABALIN [Concomitant]
     Dosage: 300 MG, BID
     Route: 048
  3. VENLAFAXINE [Concomitant]
     Dosage: 225 MG, QD
     Route: 048
  4. OMEPRAZOLE [Concomitant]
     Dosage: 20 MG, QD
     Route: 048
  5. DOMPERIDONE [Concomitant]
     Dosage: 10 MG, TID
     Route: 048
  6. SIMVASTATIN [Concomitant]
     Dosage: 40 MG, QD (NOCTE)
     Route: 048
  7. ARIPIPRAZOLE [Concomitant]
     Indication: SCHIZOPHRENIA
     Dosage: 10 MG, QD
     Route: 048
     Dates: start: 20100914

REACTIONS (6)
  - General physical condition abnormal [Unknown]
  - Lower respiratory tract infection [Unknown]
  - Neutrophilia [Recovered/Resolved]
  - Leukocytosis [Recovered/Resolved]
  - Differential white blood cell count abnormal [Unknown]
  - Monocytosis [Unknown]
